FAERS Safety Report 7011945-0 (Version None)
Quarter: 2010Q3

REPORT INFORMATION
  Report Type: 
  Country: None (occurrence: None)
  Receive Date: 20100924
  Receipt Date: 20100913
  Transmission Date: 20110219
  Serious: Yes (Life-Threatening, Hospitalization, Other)
  Sender: FDA-Public Use
  Company Number: US-BAYER-200928692NA

PATIENT
  Age: 44 Year
  Sex: Female
  Weight: 68 kg

DRUGS (11)
  1. YAZ [Suspect]
     Indication: CONTRACEPTION
     Dosage: TOTAL DAILY DOSE: 1 DF
     Route: 048
     Dates: start: 20071009, end: 20071020
  2. POTASSIUM CHLORIDE [Concomitant]
     Indication: MINERAL SUPPLEMENTATION
     Route: 065
  3. ASCORBIC ACID [Concomitant]
     Route: 065
  4. MULTI-VITAMIN [Concomitant]
     Route: 065
  5. ADVIL LIQUI-GELS [Concomitant]
     Route: 065
  6. MOTRIN [Concomitant]
     Route: 065
  7. PANTONPEAZOLE I ACIPHEX OMEPRAZIDE [Concomitant]
     Indication: GASTROOESOPHAGEAL REFLUX DISEASE
     Dosage: 1995
     Route: 065
  8. ALLEGRA 0 [Concomitant]
     Route: 065
     Dates: start: 20050101
  9. NASONEX [Concomitant]
     Route: 065
     Dates: start: 20050101
  10. TRIAMTENENEF HCTZ [Concomitant]
     Route: 065
     Dates: start: 20050101
  11. TYLENOL [Concomitant]
     Route: 065

REACTIONS (6)
  - DEEP VEIN THROMBOSIS [None]
  - DYSPNOEA [None]
  - FEELING HOT [None]
  - OEDEMA PERIPHERAL [None]
  - PAIN IN EXTREMITY [None]
  - PULMONARY EMBOLISM [None]
